FAERS Safety Report 7773793-3 (Version None)
Quarter: 2011Q3

REPORT INFORMATION
  Report Type: 
  Country: None (occurrence: None)
  Receive Date: 20110923
  Receipt Date: 20110916
  Transmission Date: 20111222
  Serious: Yes (Hospitalization)
  Sender: FDA-Public Use
  Company Number: AU-JNJFOC-20110710146

PATIENT
  Sex: Male

DRUGS (3)
  1. STELARA [Suspect]
     Route: 058
     Dates: start: 20110621
  2. STELARA [Suspect]
     Route: 058
     Dates: start: 20110112
  3. STELARA [Suspect]
     Indication: PSORIASIS
     Route: 058
     Dates: start: 20110328

REACTIONS (4)
  - SKIN CANCER [None]
  - LACERATION [None]
  - PSORIASIS [None]
  - WOUND INFECTION [None]
